FAERS Safety Report 5631185-7 (Version None)
Quarter: 2008Q1

REPORT INFORMATION
  Report Type: 
  Country: None (occurrence: None)
  Receive Date: 20080213
  Receipt Date: 20080204
  Transmission Date: 20080703
  Serious: Yes (Death)
  Sender: FDA-Public Use
  Company Number: 2008-00957

PATIENT
  Age: 49 Year
  Sex: Female

DRUGS (2)
  1. ISONIAZID [Suspect]
  2. FLUOXETINE [Suspect]

REACTIONS (1)
  - CARDIO-RESPIRATORY ARREST [None]
